FAERS Safety Report 6042253-2 (Version None)
Quarter: 2009Q1

REPORT INFORMATION
  Report Type: 
  Country: None (occurrence: None)
  Receive Date: 20090116
  Receipt Date: 20090107
  Transmission Date: 20090719
  Serious: Yes (Life-Threatening, Hospitalization, Disabling, Congenital Anomaly, Other)
  Sender: FDA-Public Use
  Company Number: CA-PFIZER INC-2008022976

PATIENT

DRUGS (11)
  1. BLINDED *PLACEBO [Suspect]
     Indication: RHEUMATOID ARTHRITIS
     Route: 048
     Dates: start: 20071116, end: 20080308
  2. BLINDED CELECOXIB [Suspect]
     Indication: RHEUMATOID ARTHRITIS
     Route: 048
     Dates: start: 20071116, end: 20080308
  3. IBUPROFEN TABLETS [Suspect]
     Indication: RHEUMATOID ARTHRITIS
     Route: 048
     Dates: start: 20071116, end: 20080308
  4. NAPROXEN [Suspect]
     Indication: RHEUMATOID ARTHRITIS
     Route: 048
     Dates: start: 20071116, end: 20080308
  5. NEXIUM [Concomitant]
     Route: 048
     Dates: start: 20071116, end: 20080308
  6. PREDNISONE [Concomitant]
     Dates: start: 19990107
  7. HYDROMORPHONE HYDROCHLORIDE [Concomitant]
     Dates: start: 20061101
  8. GABAPENTIN [Concomitant]
     Dates: start: 20061101
  9. NOVOLIN [Concomitant]
     Dates: start: 20061001
  10. HUMALOG [Concomitant]
     Dates: start: 20061001
  11. ZESTRIL [Concomitant]
     Dates: start: 20031101

REACTIONS (5)
  - ACUTE MYOCARDIAL INFARCTION [None]
  - ARTHRITIS BACTERIAL [None]
  - DEAFNESS [None]
  - PERIPHERAL ISCHAEMIA [None]
  - PNEUMONIA [None]
